FAERS Safety Report 5666552-9 (Version None)
Quarter: 2008Q1

REPORT INFORMATION
  Report Type: 
  Country: None (occurrence: None)
  Receive Date: 20080315
  Receipt Date: 20071219
  Transmission Date: 20080703
  Serious: Yes (Hospitalization)
  Sender: FDA-Public Use
  Company Number: US-ABBOTT-07P-163-0430989-00

PATIENT
  Sex: Male
  Weight: 102.3 kg

DRUGS (3)
  1. HUMIRA [Suspect]
     Indication: PSORIATIC ARTHROPATHY
     Route: 058
     Dates: start: 20070301, end: 20071001
  2. HUMIRA [Suspect]
     Indication: PSORIASIS
  3. UNKNOWN ANTIBIOTIC [Concomitant]
     Indication: SINUSITIS
     Route: 048
     Dates: start: 20071001, end: 20071101

REACTIONS (3)
  - ASTHMA [None]
  - MYOCARDIAL INFARCTION [None]
  - SINUSITIS [None]
